FAERS Safety Report 13622662 (Version 1)
Quarter: 2017Q2

REPORT INFORMATION
  Report Type: Report from Study
  Country: US (occurrence: US)
  Receive Date: 20170607
  Receipt Date: 20170607
  Transmission Date: 20170830
  Serious: Yes (Hospitalization, Other)
  Sender: FDA-Public Use
  Company Number: PHEH2015US009665

PATIENT
  Sex: Female
  Weight: 72.5 kg

DRUGS (1)
  1. GILENYA [Suspect]
     Active Substance: FINGOLIMOD HYDROCHLORIDE
     Indication: MULTIPLE SCLEROSIS
     Dosage: 0.5 MG, QD
     Route: 048
     Dates: start: 20141015

REACTIONS (3)
  - Pain [Not Recovered/Not Resolved]
  - Peripheral arterial occlusive disease [Recovered/Resolved with Sequelae]
  - Asthenia [Not Recovered/Not Resolved]
